FAERS Safety Report 7358840-5 (Version None)
Quarter: 2011Q1

REPORT INFORMATION
  Report Type: 
  Country: None (occurrence: None)
  Receive Date: 20110317
  Receipt Date: 20110310
  Transmission Date: 20110831
  Serious: Yes (Hospitalization)
  Sender: FDA-Public Use
  Company Number: B0700276A

PATIENT
  Sex: Male
  Weight: 118.2 kg

DRUGS (4)
  1. FENOFIBRATE [Concomitant]
  2. AVANDIA [Suspect]
     Indication: DIABETES MELLITUS
     Route: 048
     Dates: start: 20030101, end: 20060101
  3. NIASPAN [Concomitant]
  4. LISINOPRIL [Concomitant]

REACTIONS (2)
  - CEREBROVASCULAR ACCIDENT [None]
  - ANGINA UNSTABLE [None]
